FAERS Safety Report 9580520 (Version 2)
Quarter: 2013Q4

REPORT INFORMATION
  Report Type: Spontaneous
  Country: US (occurrence: US)
  Receive Date: 20131002
  Receipt Date: 20131011
  Transmission Date: 20140711
  Serious: Yes (Hospitalization)
  Sender: FDA-Public Use
  Company Number: US-LUNDBECK-DKLU1093963

PATIENT
  Age: 26 Year
  Sex: Female

DRUGS (7)
  1. ONFI [Suspect]
     Indication: CONVULSION
     Route: 048
     Dates: start: 201306
  2. ONFI [Suspect]
     Route: 048
     Dates: start: 201306
  3. ONFI [Suspect]
     Route: 048
  4. ONFI [Suspect]
     Route: 048
  5. KEPPRA [Concomitant]
     Indication: PRODUCT USED FOR UNKNOWN INDICATION
  6. LAMICTAL XR [Concomitant]
     Indication: PRODUCT USED FOR UNKNOWN INDICATION
  7. ZONISAMIDE [Concomitant]
     Indication: PRODUCT USED FOR UNKNOWN INDICATION

REACTIONS (8)
  - Fall [Unknown]
  - Rib fracture [Unknown]
  - Traumatic lung injury [Unknown]
  - Convulsion [Unknown]
  - Dyskinesia [Unknown]
  - Malaise [Unknown]
  - Vomiting [Unknown]
  - Medication error [Unknown]
